FAERS Safety Report 9550355 (Version 12)
Quarter: 2016Q2

REPORT INFORMATION
  Report Type: Report from Study
  Country: US (occurrence: US)
  Receive Date: 20130924
  Receipt Date: 20160629
  Transmission Date: 20160815
  Serious: Yes (Hospitalization, Other)
  Sender: FDA-Public Use
  Company Number: US-SANOFI-AVENTIS-2013SA075694

PATIENT
  Age: 52 Year
  Sex: Female

DRUGS (4)
  1. AUBAGIO [Suspect]
     Active Substance: TERIFLUNOMIDE
     Indication: MULTIPLE SCLEROSIS
     Route: 048
     Dates: start: 201604
  2. AUBAGIO [Suspect]
     Active Substance: TERIFLUNOMIDE
     Indication: MULTIPLE SCLEROSIS
     Route: 048
     Dates: end: 201604
  3. AUBAGIO [Suspect]
     Active Substance: TERIFLUNOMIDE
     Indication: MULTIPLE SCLEROSIS
     Route: 048
     Dates: start: 20130607
  4. AUBAGIO [Suspect]
     Active Substance: TERIFLUNOMIDE
     Indication: MULTIPLE SCLEROSIS
     Route: 048
     Dates: start: 201404, end: 20140516

REACTIONS (36)
  - Urinary tract infection [Recovered/Resolved]
  - Ligament sprain [Unknown]
  - Musculoskeletal pain [Unknown]
  - Sepsis [Not Recovered/Not Resolved]
  - Limb injury [Unknown]
  - Dizziness [Unknown]
  - Tremor [Recovered/Resolved]
  - Pyrexia [Recovered/Resolved]
  - Alopecia [Unknown]
  - Musculoskeletal discomfort [Unknown]
  - Constipation [Not Recovered/Not Resolved]
  - Balance disorder [Recovering/Resolving]
  - Sneezing [Unknown]
  - Paraesthesia [Unknown]
  - Nephrolithiasis [Not Recovered/Not Resolved]
  - Fall [Unknown]
  - Road traffic accident [Unknown]
  - Rhinorrhoea [Unknown]
  - Unevaluable event [Unknown]
  - Product supply issue [Unknown]
  - Urinary incontinence [Not Recovered/Not Resolved]
  - Wound infection [Recovering/Resolving]
  - Gait disturbance [Unknown]
  - Weight bearing difficulty [Unknown]
  - Pain [Recovered/Resolved]
  - Kidney infection [Not Recovered/Not Resolved]
  - Condition aggravated [Not Recovered/Not Resolved]
  - Fatigue [Unknown]
  - Back pain [Not Recovered/Not Resolved]
  - Joint injury [Not Recovered/Not Resolved]
  - Muscle spasms [Unknown]
  - Influenza like illness [Unknown]
  - Nasopharyngitis [Unknown]
  - Diarrhoea [Not Recovered/Not Resolved]
  - Nausea [Recovered/Resolved]
  - Drug dose omission [Unknown]

NARRATIVE: CASE EVENT DATE: 2013
